FAERS Safety Report 6361193-2 (Version None)
Quarter: 2009Q3

REPORT INFORMATION
  Report Type: 
  Country: None (occurrence: None)
  Receive Date: 20090918
  Receipt Date: 20090914
  Transmission Date: 20100115
  Serious: Yes (Other)
  Sender: FDA-Public Use
  Company Number: DE-TEVA-209423ISR

PATIENT
  Age: 35 Year
  Sex: Female

DRUGS (1)
  1. SUMATRIPTAN SUCCINATE [Suspect]

REACTIONS (2)
  - COLITIS ISCHAEMIC [None]
  - COLITIS ULCERATIVE [None]
